FAERS Safety Report 6829726-7 (Version None)
Quarter: 2010Q3

REPORT INFORMATION
  Report Type: 
  Country: None (occurrence: None)
  Receive Date: 20100709
  Receipt Date: 20070716
  Transmission Date: 20110219
  Serious: Yes (Other)
  Sender: FDA-Public Use
  Company Number: US-PFIZER INC-2007018672

PATIENT
  Sex: Female
  Weight: 83.9 kg

DRUGS (3)
  1. CHANTIX [Suspect]
     Indication: EX-TOBACCO USER
     Route: 048
     Dates: end: 20070401
  2. CHANTIX [Suspect]
     Indication: TOBACCO ABUSE
  3. GLUCOVANCE [Concomitant]
     Dosage: UNIT DOSE = 5MG/1000MG

REACTIONS (6)
  - ARRHYTHMIA [None]
  - BLOOD GLUCOSE INCREASED [None]
  - HEART RATE INCREASED [None]
  - MYOCARDIAL INFARCTION [None]
  - PALPITATIONS [None]
  - PULMONARY EMBOLISM [None]
